FAERS Safety Report 24349066 (Version 2)
Quarter: 2024Q4

REPORT INFORMATION
  Report Type: Spontaneous
  Country: US (occurrence: US)
  Receive Date: 20240923
  Receipt Date: 20241001
  Transmission Date: 20250114
  Serious: Yes (Other)
  Sender: EMD SERONO INC
  Company Number: US-Merck Healthcare KGaA-2024049586

PATIENT
  Age: 33 Year

DRUGS (1)
  1. MAVENCLAD [Suspect]
     Active Substance: CLADRIBINE
     Indication: Multiple sclerosis
     Dosage: YEAR ONE THERAPY
     Dates: start: 2023

REACTIONS (3)
  - White blood cell count decreased [Unknown]
  - Lymphocyte count decreased [Not Recovered/Not Resolved]
  - Product administration error [Unknown]

NARRATIVE: CASE EVENT DATE: 20240501
